FAERS Safety Report 20782709 (Version 3)
Quarter: 2022Q3

REPORT INFORMATION
  Report Type: Spontaneous
  Country: EE (occurrence: EE)
  Receive Date: 20220504
  Receipt Date: 20220708
  Transmission Date: 20221027
  Serious: Yes (Hospitalization, Other)
  Sender: FDA-Public Use
  Company Number: EE-SA-SAC20211029001213

PATIENT
  Age: 49 Year
  Sex: Female

DRUGS (5)
  1. ENOXAPARIN SODIUM [Suspect]
     Active Substance: ENOXAPARIN SODIUM
     Indication: Thrombosis
     Dosage: 6000 IU, Q12H
     Route: 065
     Dates: start: 20210915, end: 20211014
  2. ENOXAPARIN SODIUM [Suspect]
     Active Substance: ENOXAPARIN SODIUM
     Indication: Thrombosis prophylaxis
     Dosage: 6000 IU, QD
     Route: 065
     Dates: start: 20211015, end: 20211114
  3. ENOXAPARIN SODIUM [Suspect]
     Active Substance: ENOXAPARIN SODIUM
     Dosage: 4000 IU, QD
     Dates: start: 20211115, end: 20220117
  4. ENOXAPARIN SODIUM [Suspect]
     Active Substance: ENOXAPARIN SODIUM
     Dosage: 4000 IU, QD
     Route: 058
     Dates: start: 20220318, end: 20220401
  5. ENOXAPARIN SODIUM [Suspect]
     Active Substance: ENOXAPARIN SODIUM
     Dosage: 4000 IU, QD
     Route: 058
     Dates: start: 20210915, end: 20220429

REACTIONS (22)
  - Abdominal pain upper [Recovering/Resolving]
  - Vaginal haemorrhage [Recovered/Resolved]
  - Condition aggravated [Recovered/Resolved]
  - Uterine atony [Recovered/Resolved]
  - Amniotic fluid volume decreased [Unknown]
  - Uterine spasm [Recovered/Resolved]
  - Uterine pain [Recovered/Resolved]
  - Paraesthesia [Unknown]
  - Muscular weakness [Unknown]
  - Urinary incontinence [Unknown]
  - Musculoskeletal pain [Unknown]
  - Pain in extremity [Unknown]
  - Hypoaesthesia [Unknown]
  - Rash pruritic [Recovering/Resolving]
  - Pyrexia [Recovering/Resolving]
  - Maternal exposure during pregnancy [Unknown]
  - Feeling abnormal [Unknown]
  - Abdominal pain [Recovered/Resolved]
  - Uterine hypertonus [Unknown]
  - Limb discomfort [Unknown]
  - Eating disorder [Unknown]
  - Intentional product misuse [Unknown]

NARRATIVE: CASE EVENT DATE: 20210101
